FAERS Safety Report 18898520 (Version 1)
Quarter: 2021Q1

REPORT INFORMATION
  Report Type: Spontaneous
  Country: US (occurrence: US)
  Receive Date: 20210216
  Receipt Date: 20210216
  Transmission Date: 20210420
  Serious: Yes (Other)
  Sender: FDA-Public Use
  Company Number: US-DRREDDYS-USA/USA/21/0131597

PATIENT
  Age: 23 Year
  Sex: Female

DRUGS (1)
  1. ZENATANE [Suspect]
     Active Substance: ISOTRETINOIN
     Indication: PRODUCT USED FOR UNKNOWN INDICATION
     Dosage: RMA ISSUE DATE: 6/9/2020 9:25:44 AM, 7/9/2020 2:46:58 PM, 8/7/2020 12:19:05 PM, 9/9/2020 4:24:58 PM,
     Route: 048
     Dates: start: 20200409

REACTIONS (1)
  - Exposure during pregnancy [Unknown]
